FAERS Safety Report 7645241-5 (Version None)
Quarter: 2011Q3

REPORT INFORMATION
  Report Type: 
  Country: None (occurrence: None)
  Receive Date: 20110729
  Receipt Date: 20110718
  Transmission Date: 20111222
  Serious: Yes (Hospitalization, Other)
  Sender: FDA-Public Use
  Company Number: ES-MERCK-1107ESP00033

PATIENT
  Age: 79 Year
  Sex: Female

DRUGS (4)
  1. CANDESARTAN CILEXETIL [Concomitant]
     Indication: HYPERTENSION
     Route: 065
  2. ATORVASTATIN [Concomitant]
     Indication: HYPERLIPIDAEMIA
     Route: 065
  3. ALENDRONATE SODIUM [Suspect]
     Indication: OSTEOPOROSIS POSTMENOPAUSAL
     Route: 048
  4. FOSAMAX [Suspect]
     Indication: OSTEOPOROSIS POSTMENOPAUSAL
     Route: 048

REACTIONS (3)
  - FEMUR FRACTURE [None]
  - FRACTURE DELAYED UNION [None]
  - ARTHROPATHY [None]
